FAERS Safety Report 12897346 (Version 1)
Quarter: 2016Q4

REPORT INFORMATION
  Report Type: Report from Study
  Country: US (occurrence: US)
  Receive Date: 20161031
  Receipt Date: 20161031
  Transmission Date: 20170207
  Serious: Yes (Hospitalization, Other)
  Sender: FDA-Public Use
  Company Number: US-BAYER-2016-181731

PATIENT
  Age: 65 Year
  Sex: Female
  Weight: 78.91 kg

DRUGS (5)
  1. ADEMPAS [Suspect]
     Active Substance: RIOCIGUAT
     Indication: PULMONARY HYPERTENSION
     Dosage: 2.5 MG, TID
     Route: 048
  2. APIXABAN [Concomitant]
     Active Substance: APIXABAN
     Dosage: UNK
  3. ADEMPAS [Suspect]
     Active Substance: RIOCIGUAT
     Indication: PULMONARY HYPERTENSION
     Dosage: UNK
     Route: 048
     Dates: start: 20160513
  4. ADEMPAS [Suspect]
     Active Substance: RIOCIGUAT
     Indication: PULMONARY HYPERTENSION
     Dosage: 2 MG, TID
     Route: 048
  5. PROCARDIA [Concomitant]
     Active Substance: NIFEDIPINE
     Dosage: UNK

REACTIONS (10)
  - Therapy cessation [Unknown]
  - Headache [Unknown]
  - Weight decreased [Unknown]
  - Oedema peripheral [None]
  - Anaemia [Recovered/Resolved]
  - Anaemia [None]
  - Nausea [Unknown]
  - Dyspnoea [Not Recovered/Not Resolved]
  - Dizziness [Unknown]
  - Decreased appetite [Unknown]

NARRATIVE: CASE EVENT DATE: 20161012
